FAERS Safety Report 7337840-5 (Version None)
Quarter: 2011Q1

REPORT INFORMATION
  Report Type: 
  Country: None (occurrence: None)
  Receive Date: 20110308
  Receipt Date: 20110304
  Transmission Date: 20110831
  Serious: Yes (Hospitalization)
  Sender: FDA-Public Use
  Company Number: RU-ROCHE-753973

PATIENT
  Age: 72 Year
  Sex: Female

DRUGS (5)
  1. NO-SPA [Concomitant]
     Indication: BACK PAIN
     Route: 048
  2. BONIVA [Suspect]
     Indication: OSTEOPOROSIS
     Dosage: SECOND DOSE: 29 NOV 2009, THIRD DOSE: 14 JAN 2011
     Route: 040
     Dates: start: 20090814, end: 20110114
  3. MYDOCALM [Concomitant]
     Indication: BACK PAIN
     Dosage: REPORED AS: MIDOCALM
     Route: 042
  4. TENORIC [Concomitant]
     Indication: HYPERTENSION
     Dosage: REPORTED AS: TENORIK
     Route: 048
  5. METOPROLOL [Concomitant]
     Indication: HYPERTENSION
     Route: 048

REACTIONS (2)
  - THROMBOPHLEBITIS [None]
  - HEPATIC PAIN [None]
